FAERS Safety Report 6761428-8 (Version None)
Quarter: 2010Q2

REPORT INFORMATION
  Report Type: 
  Country: None (occurrence: None)
  Receive Date: 20100607
  Receipt Date: 20100524
  Transmission Date: 20101027
  Serious: Yes (Life-Threatening, Other)
  Sender: FDA-Public Use
  Company Number: 602515

PATIENT
  Age: 64 Year
  Sex: Male

DRUGS (8)
  1. CYTARABINE [Suspect]
     Dosage: INTRAVENOUS
     Route: 042
     Dates: start: 20100507, end: 20100611
  2. FLUDARABINE PHOSPHATE [Concomitant]
  3. ALLOPURINOL [Concomitant]
  4. CIPROFLOXACIN [Concomitant]
  5. COTRIM [Concomitant]
  6. IDARUBICIN HCL [Concomitant]
  7. ITRACONAZOLE [Concomitant]
  8. PREDNISOLONE [Concomitant]

REACTIONS (3)
  - CYTARABINE SYNDROME [None]
  - HYPOXIA [None]
  - PYREXIA [None]
